FAERS Safety Report 16980062 (Version 4)
Quarter: 2020Q2

REPORT INFORMATION
  Report Type: Report from Study
  Country: BR (occurrence: BR)
  Receive Date: 20191031
  Receipt Date: 20200604
  Transmission Date: 20200713
  Serious: Yes (Life-Threatening, Hospitalization, Other)
  Sender: FDA-Public Use
  Company Number: PHHY2017BR171850

PATIENT
  Age: 70 Year
  Sex: Female
  Weight: 98 kg

DRUGS (22)
  1. SANDOSTATIN LAR DEPOT [Suspect]
     Active Substance: OCTREOTIDE ACETATE
     Dosage: 40 MG, QMO (TWO DOSES OF 20 MG LEFT AND RIGHT SIDES)
     Route: 030
     Dates: start: 20191023
  2. CEDUR [Concomitant]
     Active Substance: BEZAFIBRATE
     Indication: BLOOD CHOLESTEROL
     Dosage: 1 DF, QD (AT MORNING)
     Route: 065
  3. FLUOXETINA [Concomitant]
     Active Substance: FLUOXETINE HYDROCHLORIDE
     Indication: ANXIETY
     Dosage: 1 DF, QHS
     Route: 065
  4. RIVOTRIL [Concomitant]
     Active Substance: CLONAZEPAM
     Indication: PANIC ATTACK
     Dosage: 1 DF (0.5)
     Route: 065
  5. METFORMINA [Concomitant]
     Active Substance: METFORMIN HYDROCHLORIDE
     Indication: DIABETES MELLITUS
     Dosage: 2 DF, Q12H
     Route: 065
  6. ALPRAZOLAM. [Concomitant]
     Active Substance: ALPRAZOLAM
     Indication: PANIC DISORDER
  7. SANDOSTATIN LAR DEPOT [Suspect]
     Active Substance: OCTREOTIDE ACETATE
     Dosage: 40 MG, QMO (TWO DOSES OF 20 MG LEFT AND RIGHT SIDES)
     Route: 030
     Dates: start: 20190717
  8. CARDIZEM [Concomitant]
     Active Substance: DILTIAZEM HYDROCHLORIDE
     Indication: CARDIAC DISORDER
     Dosage: 1 DF, QD
     Route: 065
  9. SANDOSTATIN LAR DEPOT [Suspect]
     Active Substance: OCTREOTIDE ACETATE
     Dosage: 30 MG, QMO
     Route: 030
     Dates: start: 200806
  10. SANDOSTATIN LAR DEPOT [Suspect]
     Active Substance: OCTREOTIDE ACETATE
     Dosage: 40 MG, QMO (TWO DOSES OF 20 MG LEFT AND RIGHT SIDES)
     Route: 030
     Dates: start: 20190925
  11. SANDOSTATIN LAR DEPOT [Suspect]
     Active Substance: OCTREOTIDE ACETATE
     Dosage: 40 MG, QMO (BEING TWO APPLICATION OF 20MG;PERFORM TWO APPLICATION OF 20MG TOTALIZING 40MG)
     Route: 030
  12. ATENOLOL. [Concomitant]
     Active Substance: ATENOLOL
     Indication: CARDIAC DISORDER
     Dosage: 1 DF, QD
     Route: 048
  13. SANDOSTATIN LAR DEPOT [Suspect]
     Active Substance: OCTREOTIDE ACETATE
     Dosage: 40 MG, QMO (TWO DOSES OF 20 MG LEFT AND RIGHT SIDES)
     Route: 030
     Dates: start: 20190814
  14. FLAVONID [Concomitant]
     Indication: BLOOD CHOLESTEROL
     Dosage: 1 DF, QD
     Route: 065
  15. SANDOSTATIN LAR DEPOT [Suspect]
     Active Substance: OCTREOTIDE ACETATE
     Dosage: 40 MG, QMO (TWO DOSES OF 20 MG)
     Route: 030
     Dates: start: 20141119
  16. SANDOSTATIN LAR DEPOT [Suspect]
     Active Substance: OCTREOTIDE ACETATE
     Dosage: 30 MG, UNK
     Route: 065
  17. FORXIGA [Concomitant]
     Active Substance: DAPAGLIFLOZIN
     Indication: DIABETES MELLITUS
     Dosage: 1 DF, QD (MORNING)
     Route: 065
  18. ALPRAZOLAM. [Concomitant]
     Active Substance: ALPRAZOLAM
     Indication: ANXIETY
     Dosage: 1 DF, BID (0.25)
     Route: 065
  19. SANDOSTATIN LAR DEPOT [Suspect]
     Active Substance: OCTREOTIDE ACETATE
     Indication: ACROMEGALY
     Dosage: 40 MG, UNK
     Route: 065
     Dates: start: 20080101
  20. CLOPIDOGREL [Concomitant]
     Active Substance: CLOPIDOGREL BISULFATE
     Indication: ANTICOAGULANT THERAPY
     Dosage: 1 DF, QD (AFTER LUNCH)
     Route: 065
     Dates: start: 20190912
  21. GLIMEPIRIDA [Concomitant]
     Active Substance: GLIMEPIRIDE
     Indication: BLOOD CHOLESTEROL
     Dosage: 1 DF, QD (MORNING)
     Route: 065
  22. RANITIDINE. [Concomitant]
     Active Substance: RANITIDINE
     Indication: GASTROINTESTINAL DISORDER
     Dosage: 1 DF, QD (MORNING)
     Route: 065

REACTIONS (58)
  - Blood cholesterol increased [Not Recovered/Not Resolved]
  - Feeling abnormal [Unknown]
  - Arthralgia [Recovered/Resolved]
  - Hypertension [Recovered/Resolved]
  - Blood glucose increased [Not Recovered/Not Resolved]
  - Erythema [Recovered/Resolved]
  - Hypersensitivity [Recovering/Resolving]
  - Lip swelling [Unknown]
  - Product dose omission [Unknown]
  - Pruritus [Unknown]
  - Peripheral swelling [Unknown]
  - Diabetic complication [Unknown]
  - Eating disorder [Unknown]
  - Cold sweat [Unknown]
  - Erythema [Unknown]
  - Blood growth hormone increased [Recovered/Resolved]
  - Lip swelling [Recovering/Resolving]
  - Heart rate increased [Unknown]
  - Pruritus [Recovered/Resolved]
  - Limb discomfort [Unknown]
  - Crying [Unknown]
  - Fatigue [Not Recovered/Not Resolved]
  - Eye pruritus [Unknown]
  - Speech disorder [Recovering/Resolving]
  - Asphyxia [Recovered/Resolved]
  - Pain in extremity [Recovered/Resolved]
  - Lip swelling [Recovered/Resolved]
  - Peripheral swelling [Recovered/Resolved]
  - Mouth swelling [Recovering/Resolving]
  - Memory impairment [Not Recovered/Not Resolved]
  - Pain [Recovered/Resolved]
  - Gingival disorder [Unknown]
  - Near death experience [Unknown]
  - Depression [Recovering/Resolving]
  - Tearfulness [Unknown]
  - Gait disturbance [Recovering/Resolving]
  - Body height decreased [Unknown]
  - Blood growth hormone increased [Unknown]
  - Eye pruritus [Recovered/Resolved]
  - Malaise [Unknown]
  - Peripheral swelling [Recovering/Resolving]
  - Deafness [Not Recovered/Not Resolved]
  - Back pain [Recovered/Resolved]
  - Cold sweat [Recovered/Resolved]
  - Erythema [Recovered/Resolved]
  - Dizziness [Unknown]
  - Heart rate increased [Recovered/Resolved]
  - Pruritus [Recovered/Resolved]
  - Teeth brittle [Recovering/Resolving]
  - Disorientation [Unknown]
  - Hypersensitivity [Recovered/Resolved]
  - Asphyxia [Unknown]
  - Hypothalamo-pituitary disorder [Unknown]
  - Hypertension [Not Recovered/Not Resolved]
  - Pain [Recovered/Resolved]
  - Peripheral swelling [Unknown]
  - Blood glucose increased [Recovered/Resolved]
  - Depressed mood [Unknown]

NARRATIVE: CASE EVENT DATE: 2019
